FAERS Safety Report 9649019 (Version 1)
Quarter: 2013Q4

REPORT INFORMATION
  Report Type: Spontaneous
  Country: US (occurrence: US)
  Receive Date: 20131028
  Receipt Date: 20131028
  Transmission Date: 20140711
  Serious: Yes (Hospitalization, Other)
  Sender: FDA-Public Use
  Company Number: US-ASTELLAS-2013US011081

PATIENT
  Age: 61 Year
  Sex: Female

DRUGS (2)
  1. LEXISCAN [Suspect]
     Indication: CHEST PAIN
     Dosage: UNK
     Route: 042
     Dates: start: 20131011, end: 20131011
  2. LEXISCAN [Suspect]
     Indication: DYSPNOEA

REACTIONS (4)
  - Eye movement disorder [Unknown]
  - Atrioventricular block complete [Unknown]
  - Electrocardiogram abnormal [Unknown]
  - Nausea [Unknown]
